FAERS Safety Report 17124886 (Version 1)
Quarter: 2019Q4

REPORT INFORMATION
  Report Type: Spontaneous
  Country: CA (occurrence: CA)
  Receive Date: 20191206
  Receipt Date: 20191206
  Transmission Date: 20200122
  Serious: Yes (Other)
  Sender: FDA-Public Use
  Company Number: CA-PFIZER INC-2019526395

PATIENT
  Age: 22 Year
  Sex: Female

DRUGS (3)
  1. XELJANZ XR [Suspect]
     Active Substance: TOFACITINIB CITRATE
     Dosage: 11 MG, 1X/DAY
     Route: 048
     Dates: start: 2019
  2. XELJANZ XR [Suspect]
     Active Substance: TOFACITINIB CITRATE
     Indication: RHEUMATOID ARTHRITIS
     Dosage: 11 MG, 1X/DAY
     Route: 048
     Dates: start: 20191024, end: 2019
  3. CELEBREX [Concomitant]
     Active Substance: CELECOXIB
     Dosage: 100 MG, 2X/DAY
     Route: 065

REACTIONS (2)
  - Migraine [Not Recovered/Not Resolved]
  - Blindness [Not Recovered/Not Resolved]

NARRATIVE: CASE EVENT DATE: 201910
